FAERS Safety Report 5153069-3 (Version None)
Quarter: 2006Q4

REPORT INFORMATION
  Report Type: 
  Country: None (occurrence: None)
  Receive Date: 20061117
  Receipt Date: 20061107
  Transmission Date: 20070319
  Serious: Yes (Hospitalization)
  Sender: FDA-Public Use
  Company Number: ES-ABBOTT-06P-144-0349883-00

PATIENT
  Age: 27 Year
  Sex: Female

DRUGS (4)
  1. LOPINAVIR/RITONAVIR [Suspect]
     Indication: HIV INFECTION
     Dosage: NOT REPORTED
  2. STAVUDINE [Suspect]
     Indication: HIV INFECTION
     Dosage: NOT REPORTED
  3. LAMIVUDINE [Suspect]
     Indication: HIV INFECTION
     Dosage: NOT REPORTED
  4. PAROMOMYCIN [Concomitant]
     Indication: GASTROENTERITIS CRYPTOSPORIDIAL
     Dosage: NOT REPORTED

REACTIONS (2)
  - CROHN'S DISEASE [None]
  - IMMUNE RECONSTITUTION SYNDROME [None]
